FAERS Safety Report 25140141 (Version 1)
Quarter: 2025Q1

REPORT INFORMATION
  Report Type: Spontaneous
  Country: DE (occurrence: DE)
  Receive Date: 20250331
  Receipt Date: 20250331
  Transmission Date: 20250408
  Serious: Yes (Congenital Anomaly, Other)
  Sender: AUROBINDO
  Company Number: DE-EMB-M202310024-1

PATIENT
  Sex: Female
  Weight: 2.84 kg

DRUGS (10)
  1. VENLAFAXINE [Suspect]
     Active Substance: VENLAFAXINE HYDROCHLORIDE
     Indication: Panic disorder
     Dosage: 150 MILLIGRAM, ONCE A DAY
     Route: 064
     Dates: start: 202306
  2. PIPAMPERONE [Suspect]
     Active Substance: PIPAMPERONE
     Indication: Panic disorder
     Route: 064
     Dates: start: 202306
  3. TAVOR (LORAZEPAM) [Suspect]
     Active Substance: LORAZEPAM
     Indication: Panic disorder
     Route: 064
     Dates: start: 202307
  4. MIRTAZAPINE [Concomitant]
     Active Substance: MIRTAZAPINE
     Indication: Sleep disorder
     Dosage: 7.5 MILLIGRAM, ONCE A DAY [UNKNOWN UNTIL WHEN, CONFLICTING REPORTS]
     Route: 064
     Dates: start: 202311
  5. UNSPECIFIED INGREDIENT [Concomitant]
     Active Substance: UNSPECIFIED INGREDIENT
     Indication: Pyelonephritis
     Route: 064
     Dates: start: 202312
  6. PROMETHAZINE [Concomitant]
     Active Substance: PROMETHAZINE HYDROCHLORIDE
     Indication: Panic disorder
     Dosage: 12.5 MILLIGRAM, ONCE A DAY
     Route: 064
     Dates: start: 202401
  7. ACETAMINOPHEN [Concomitant]
     Active Substance: ACETAMINOPHEN
     Indication: Pyrexia
     Route: 064
     Dates: start: 202312
  8. METOPROLOL [Concomitant]
     Active Substance: METOPROLOL
     Indication: Gestational hypertension
     Route: 064
     Dates: start: 202402
  9. PENICILLIN [Concomitant]
     Active Substance: PENICILLIN
     Indication: Pyelonephritis
     Route: 064
     Dates: start: 202311
  10. AMOXICILLIN\CLAVULANATE POTASSIUM [Concomitant]
     Active Substance: AMOXICILLIN\CLAVULANATE POTASSIUM
     Indication: Pyelonephritis
     Route: 064
     Dates: start: 202311

REACTIONS (2)
  - Cardiac septal defect [Unknown]
  - Foetal exposure during pregnancy [Unknown]
